FAERS Safety Report 7335858-X (Version None)
Quarter: 2011Q1

REPORT INFORMATION
  Report Type: 
  Country: None (occurrence: None)
  Receive Date: 20110307
  Receipt Date: 20110224
  Transmission Date: 20110831
  Serious: Yes (Life-Threatening)
  Sender: FDA-Public Use
  Company Number: JP-JNJFOC-20101100756

PATIENT
  Age: 57 Year
  Sex: Female
  Weight: 52 kg

DRUGS (36)
  1. REMICADE [Suspect]
     Route: 042
  2. PREDNISOLONE [Concomitant]
     Indication: PSORIATIC ARTHROPATHY
     Route: 048
  3. AZULFIDINE [Concomitant]
     Route: 048
  4. METHOTREXATE [Suspect]
     Indication: PSORIATIC ARTHROPATHY
     Route: 048
  5. METHOTREXATE [Suspect]
     Route: 048
  6. METHOTREXATE [Suspect]
     Route: 048
  7. PARIET [Concomitant]
     Indication: PROPHYLAXIS
     Route: 048
  8. PREDOHAN [Concomitant]
     Indication: PSORIATIC ARTHROPATHY
     Route: 048
  9. METHOTREXATE [Suspect]
     Route: 048
  10. METHOTREXATE [Suspect]
     Route: 048
  11. DOVONEX [Concomitant]
     Indication: PSORIATIC ARTHROPATHY
  12. CALONAL [Concomitant]
     Indication: PROPHYLAXIS
     Route: 048
  13. PREDNISOLONE [Concomitant]
     Route: 048
  14. METHOTREXATE [Suspect]
     Route: 048
  15. DEPAS [Concomitant]
     Indication: ANXIETY DISORDER
     Route: 048
  16. PREDNISOLONE [Concomitant]
     Route: 048
  17. PREDNISOLONE [Concomitant]
     Route: 048
  18. PREDOHAN [Concomitant]
     Route: 048
  19. ACTONEL [Concomitant]
     Indication: PROPHYLAXIS
     Route: 048
  20. METHOTREXATE [Suspect]
     Route: 048
  21. METHOTREXATE [Suspect]
     Route: 048
  22. ALLEGRA [Concomitant]
     Indication: PROPHYLAXIS
     Route: 048
  23. PREDNISOLONE [Concomitant]
     Route: 048
  24. REMICADE [Suspect]
     Route: 042
  25. NEOISCOTIN [Concomitant]
     Indication: ANTIBIOTIC PROPHYLAXIS
     Route: 048
  26. PREDNISOLONE [Concomitant]
     Route: 048
  27. METHOTREXATE [Suspect]
     Route: 048
  28. CELECOX [Concomitant]
     Indication: PSORIATIC ARTHROPATHY
     Route: 048
  29. FOLIAMIN [Concomitant]
     Indication: PROPHYLAXIS
     Route: 048
  30. AZULFIDINE [Concomitant]
     Indication: PSORIATIC ARTHROPATHY
     Route: 048
  31. MUCOSTA [Concomitant]
     Indication: PROPHYLAXIS
     Route: 048
  32. REMICADE [Suspect]
     Indication: PSORIATIC ARTHROPATHY
     Route: 042
  33. ATARAX [Concomitant]
     Indication: PSORIATIC ARTHROPATHY
     Route: 048
  34. PYRIDOXAL PHOSPHATE [Concomitant]
     Indication: PROPHYLAXIS
     Route: 048
  35. DEPAS [Concomitant]
     Route: 048
  36. PREDNISOLONE [Concomitant]
     Route: 048

REACTIONS (1)
  - PNEUMOCYSTIS JIROVECI PNEUMONIA [None]
